FAERS Safety Report 9009503 (Version 1)
Quarter: 2013Q1

REPORT INFORMATION
  Report Type: Spontaneous
  Country: US (occurrence: US)
  Receive Date: 20130110
  Receipt Date: 20130110
  Transmission Date: 20140127
  Serious: Yes (Other)
  Sender: FDA-Public Use
  Company Number: US-GLAXOSMITHKLINE-A1006920A

PATIENT
  Age: 92 Year
  Sex: Female

DRUGS (5)
  1. FLOVENT [Suspect]
     Indication: ASTHMA
     Dosage: 1PUFF PER DAY
     Route: 055
  2. NASOCORT [Concomitant]
  3. VITAMIN C [Concomitant]
  4. THYROID MEDICATION [Concomitant]
  5. BLOOD PRESSURE MEDICATION [Concomitant]

REACTIONS (12)
  - Exophthalmos [Not Recovered/Not Resolved]
  - Cushingoid [Not Recovered/Not Resolved]
  - Lipohypertrophy [Not Recovered/Not Resolved]
  - Localised oedema [Not Recovered/Not Resolved]
  - Fat tissue increased [Not Recovered/Not Resolved]
  - Skin atrophy [Not Recovered/Not Resolved]
  - Muscular weakness [Not Recovered/Not Resolved]
  - Diarrhoea [Not Recovered/Not Resolved]
  - Asthenia [Not Recovered/Not Resolved]
  - Increased tendency to bruise [Not Recovered/Not Resolved]
  - Scratch [Not Recovered/Not Resolved]
  - Blood corticotrophin increased [Not Recovered/Not Resolved]
